FAERS Safety Report 5192834-3 (Version None)
Quarter: 2006Q4

REPORT INFORMATION
  Report Type: 
  Country: None (occurrence: None)
  Receive Date: 20061228
  Receipt Date: 20051130
  Transmission Date: 20070319
  Serious: No
  Sender: FDA-Public Use
  Company Number: US-GLAXOSMITHKLINE-A0584107A

PATIENT
  Age: 61 Year
  Sex: Female

DRUGS (8)
  1. FLONASE [Suspect]
     Dosage: 2PUFF PER DAY
     Route: 045
  2. ALLEGRA-D 12 HOUR [Concomitant]
  3. FOSAMAX [Concomitant]
  4. ZELNORM [Concomitant]
  5. ACIPHEX [Concomitant]
  6. DESYREL [Concomitant]
  7. VITAMINS [Concomitant]
  8. BENADRYL [Concomitant]

REACTIONS (2)
  - NASAL DISCOMFORT [None]
  - PHARMACEUTICAL PRODUCT COMPLAINT [None]
